FAERS Safety Report 18689232 (Version 4)
Quarter: 2021Q1

REPORT INFORMATION
  Report Type: Spontaneous
  Country: CA (occurrence: CA)
  Receive Date: 20201231
  Receipt Date: 20210302
  Transmission Date: 20210419
  Serious: Yes (Other)
  Sender: FDA-Public Use
  Company Number: CA-SA-2020SA374956

PATIENT
  Age: 57 Year
  Sex: Male

DRUGS (2)
  1. LANTUS [Suspect]
     Active Substance: INSULIN GLARGINE
     Dosage: UNK
     Route: 065
  2. NOVOPEN (R) 3 [Suspect]
     Active Substance: INSULIN HUMAN
     Dosage: UNK
     Route: 065

REACTIONS (2)
  - Incorrect dose administered [Unknown]
  - Seizure [Unknown]
